FAERS Safety Report 5588738-4 (Version None)
Quarter: 2008Q1

REPORT INFORMATION
  Report Type: 
  Country: None (occurrence: None)
  Receive Date: 20080111
  Receipt Date: 20080103
  Transmission Date: 20080703
  Serious: Yes (Other)
  Sender: FDA-Public Use
  Company Number: B0360649A

PATIENT
  Sex: Male

DRUGS (2)
  1. PAROXETINE HYDROCHLORIDE [Suspect]
     Dosage: 30MG PER DAY
     Route: 065
     Dates: start: 20010712, end: 20030114
  2. PROZAC [Concomitant]
     Dates: start: 19911111

REACTIONS (9)
  - AGGRESSION [None]
  - DISTURBANCE IN ATTENTION [None]
  - DRUG WITHDRAWAL SYNDROME [None]
  - FATIGUE [None]
  - MOOD SWINGS [None]
  - PAIN [None]
  - PARAESTHESIA [None]
  - SLEEP DISORDER [None]
  - VERTIGO [None]
